FAERS Safety Report 17109254 (Version 2)
Quarter: 2020Q4

REPORT INFORMATION
  Report Type: Spontaneous
  Country: US (occurrence: US)
  Receive Date: 20191204
  Receipt Date: 20201217
  Transmission Date: 20210113
  Serious: No
  Sender: FDA-Public Use
  Company Number: US-AUROBINDO-AUR-APL-2019-064424

PATIENT
  Age: 62 Year
  Sex: Female

DRUGS (1)
  1. PHENTERMINE HYDROCHLORIDE CAPSULES USP 15 MG [Suspect]
     Active Substance: PHENTERMINE HYDROCHLORIDE
     Indication: DECREASED APPETITE
     Dosage: 1 DOSAGE FORM, DAILY
     Route: 065

REACTIONS (5)
  - Insomnia [Unknown]
  - Drug ineffective [Unknown]
  - Hunger [Unknown]
  - Dyspnoea [Unknown]
  - Product quality issue [Unknown]
